FAERS Safety Report 8672571 (Version 2)
Quarter: 2012Q4

REPORT INFORMATION
  Report Type: 
  Country: US (occurrence: US)
  Receive Date: 20120719
  Receipt Date: 20120903
  Transmission Date: 20130627
  Serious: Yes (Death)
  Sender: FDA-Public Use
  Company Number: US-BRISTOL-MYERS SQUIBB COMPANY-16761470

PATIENT
  Age: 51 Year
  Sex: Female

DRUGS (1)
  1. YERVOY [Suspect]
     Indication: MALIGNANT MELANOMA
     Dosage: Dose 1
     Route: 042
     Dates: start: 20120523

REACTIONS (2)
  - Malignant neoplasm progression [Fatal]
  - Hepatic failure [Fatal]
